FAERS Safety Report 4784840-5 (Version None)
Quarter: 2005Q3

REPORT INFORMATION
  Report Type: 
  Country: None (occurrence: None)
  Receive Date: 20050930
  Receipt Date: 20050928
  Transmission Date: 20060218
  Serious: Yes (Other)
  Sender: FDA-Public Use
  Company Number: PHEH2005US10806

PATIENT
  Age: 72 Year
  Sex: Female

DRUGS (2)
  1. LESCOL [Suspect]
  2. MACROBID [Suspect]
     Indication: URINARY TRACT INFECTION
     Dosage: 100 MG, BID
     Dates: start: 20050325, end: 20050402

REACTIONS (6)
  - ALANINE AMINOTRANSFERASE INCREASED [None]
  - ASPARTATE AMINOTRANSFERASE INCREASED [None]
  - HEPATIC CYST [None]
  - OEDEMA PERIPHERAL [None]
  - RASH [None]
  - RENAL CYST [None]
